FAERS Safety Report 10422679 (Version 1)
Quarter: 2014Q3

REPORT INFORMATION
  Report Type: Spontaneous
  Country: US (occurrence: US)
  Receive Date: 20140902
  Receipt Date: 20140902
  Transmission Date: 20150326
  Serious: Yes (Other)
  Sender: FDA-Public Use
  Company Number: US-JNJCP-30000237713

PATIENT
  Sex: Female
  Weight: 48 kg

DRUGS (1)
  1. NEUTROGENA CLEAR PORE CLEANSER MASK [Suspect]
     Active Substance: BENZOYL PEROXIDE
     Indication: REMOVAL OF INERT MATTER FROM SKIN OR SUBCUTANEOUS TISSUE
     Dosage: NICKLE SIZE AMOUNT ONCE
     Route: 061
     Dates: start: 20140817, end: 20140817

REACTIONS (2)
  - Anaphylactic reaction [Recovering/Resolving]
  - Dermatitis allergic [Recovering/Resolving]

NARRATIVE: CASE EVENT DATE: 20140817
